FAERS Safety Report 21447811 (Version 2)
Quarter: 2022Q4

REPORT INFORMATION
  Report Type: Spontaneous
  Country: CO (occurrence: CO)
  Receive Date: 20221012
  Receipt Date: 20221018
  Transmission Date: 20230113
  Serious: Yes (Death, Life-Threatening, Other)
  Sender: FDA-Public Use
  Company Number: CO-BAYER-2022P016116

PATIENT
  Age: 50 Year
  Sex: Female
  Weight: 100 kg

DRUGS (1)
  1. ULTRAVIST [Suspect]
     Active Substance: IOPROMIDE
     Dosage: UNK
     Route: 042
     Dates: start: 20220907, end: 20220907

REACTIONS (12)
  - Cardio-respiratory arrest [Fatal]
  - Respiratory failure [None]
  - Pulseless electrical activity [None]
  - Systolic hypertension [None]
  - Dysphagia [None]
  - Bradycardia [None]
  - Acidosis [None]
  - Dyspnoea [None]
  - Dizziness [None]
  - Feeling hot [None]
  - Hyperhidrosis [None]
  - Vertigo [None]

NARRATIVE: CASE EVENT DATE: 20220907
